FAERS Safety Report 8616494-1 (Version None)
Quarter: 2012Q3

REPORT INFORMATION
  Report Type: 
  Country: None (occurrence: None)
  Receive Date: 20120823
  Receipt Date: 20120815
  Transmission Date: 20120928
  Serious: Yes (Death, Other)
  Sender: FDA-Public Use
  Company Number: VN-BAXTER-2012BAX014819

PATIENT
  Sex: Female

DRUGS (1)
  1. DIANEAL [Suspect]
     Dosage: 4 BAG/DAY
     Route: 033
     Dates: start: 20110328, end: 20110804

REACTIONS (3)
  - CARDIAC FAILURE [None]
  - MALAISE [None]
  - RESPIRATORY FAILURE [None]
